FAERS Safety Report 8782668 (Version 5)
Quarter: 2014Q2

REPORT INFORMATION
  Report Type: Spontaneous
  Country: US (occurrence: US)
  Receive Date: 20120913
  Receipt Date: 20131018
  Transmission Date: 20141212
  Serious: Yes (Other)
  Sender: FDA-Public Use
  Company Number: US-PFIZER INC-2012225209

PATIENT
  Age: 85 Year
  Sex: Female
  Weight: 57.1 kg

DRUGS (9)
  1. CENTRUM SILVER WOMEN^S 50+ [Suspect]
     Indication: VITAMIN SUPPLEMENTATION
     Dosage: DAILY
  2. CALTRATE [Suspect]
     Dosage: UNK
  3. HYDROCORTISONE ACETATE [Suspect]
     Indication: DERMATITIS
     Dosage: UNK
     Dates: start: 2012
  4. TRIAMCINOLONE [Suspect]
     Indication: DERMATITIS
     Dosage: UNK
     Dates: start: 2012
  5. CLOTRIMAZOLE [Suspect]
     Indication: DERMATITIS
     Dosage: UNK
     Dates: start: 2012
  6. GOLD SODIUM THIOMALATE [Suspect]
     Dosage: UNK
  7. ALPHA HYDROXY ACID [Suspect]
     Dosage: UNK
  8. AVEENO [Suspect]
     Indication: DERMATITIS
     Dosage: UNK
     Dates: start: 2012
  9. IMIDAZOLE [Suspect]
     Dosage: UNK

REACTIONS (5)
  - Herpes zoster [Recovered/Resolved]
  - Dermatitis [Not Recovered/Not Resolved]
  - Drug hypersensitivity [Unknown]
  - Drug ineffective [Unknown]
  - Multiple allergies [Unknown]
